FAERS Safety Report 9358702 (Version 3)
Quarter: 2013Q2

REPORT INFORMATION
  Report Type: Spontaneous
  Country: BR (occurrence: BR)
  Receive Date: 20130620
  Receipt Date: 20130628
  Transmission Date: 20140414
  Serious: Yes (Other)
  Sender: FDA-Public Use
  Company Number: PHHY2013BR062836

PATIENT
  Age: 79 Year
  Sex: Female

DRUGS (4)
  1. DIOVAN [Suspect]
     Indication: HYPERTENSION
     Dosage: 320 MG, DAILY
     Route: 048
  2. APRESOLIN [Suspect]
     Indication: HYPERTENSION
     Dosage: 25 MG, DAILY
     Route: 048
     Dates: end: 201304
  3. CONCARDIO [Suspect]
     Indication: HYPERTENSION
     Dosage: 1 DF (5MG), DAILY
     Route: 048
     Dates: start: 201304
  4. ATENSINA [Suspect]
     Indication: HYPERTENSION
     Dosage: 3 DF (100MG), DAILY
     Route: 048
     Dates: start: 201304

REACTIONS (2)
  - Hypertension [Unknown]
  - Blood pressure inadequately controlled [Unknown]
